FAERS Safety Report 8036608-4 (Version None)
Quarter: 2012Q1

REPORT INFORMATION
  Report Type: 
  Country: None (occurrence: None)
  Receive Date: 20120111
  Receipt Date: 20120103
  Transmission Date: 20120608
  Serious: Yes (Congenital Anomaly)
  Sender: FDA-Public Use
  Company Number: PHHY2011AU104149

PATIENT
  Sex: Female
  Weight: 2.68 kg

DRUGS (2)
  1. CARBAMAZEPINE [Suspect]
     Dosage: MATERNAL DOSE: 800 MG DAILY
     Route: 064
  2. TOPIRAMATE [Concomitant]
     Dosage: MATERNAL DOSE: 150 MG DAILY
     Route: 064

REACTIONS (2)
  - KIDNEY DUPLEX [None]
  - FOETAL EXPOSURE DURING PREGNANCY [None]
